FAERS Safety Report 7574641-7 (Version None)
Quarter: 2011Q2

REPORT INFORMATION
  Report Type: 
  Country: None (occurrence: None)
  Receive Date: 20110627
  Receipt Date: 20110601
  Transmission Date: 20111010
  Serious: Yes (Other)
  Sender: FDA-Public Use
  Company Number: US-BAYER-2011-021601

PATIENT
  Sex: Female
  Weight: 81 kg

DRUGS (4)
  1. YAZ [Suspect]
     Indication: PREMENSTRUAL SYNDROME
  2. YAZ [Suspect]
     Indication: CONTRACEPTION
     Dosage: 1 DF, QD
     Dates: start: 20061001, end: 20090101
  3. LEVOTHYROXINE SODIUM [Concomitant]
     Dosage: 1 DF, QD
  4. TRAMADOL HCL [Concomitant]
     Indication: BACK PAIN
     Dosage: 4, QD
     Route: 048

REACTIONS (4)
  - CHOLELITHIASIS [None]
  - ABDOMINAL PAIN [None]
  - CHOLECYSTITIS CHRONIC [None]
  - GASTROINTESTINAL DISORDER [None]
